FAERS Safety Report 12973192 (Version 5)
Quarter: 2017Q3

REPORT INFORMATION
  Report Type: Spontaneous
  Country: GB (occurrence: GB)
  Receive Date: 20161124
  Receipt Date: 20170912
  Transmission Date: 20171127
  Serious: Yes (Disabling)
  Sender: FDA-Public Use
  Company Number: GB-AMGEN-GBRSP2016146127

PATIENT
  Age: 80 Year
  Sex: Female
  Weight: 107 kg

DRUGS (7)
  1. PROLIA [Suspect]
     Active Substance: DENOSUMAB
     Indication: OSTEOPOROSIS
     Dosage: 60 MG, Q6MO
     Route: 058
     Dates: start: 20160923, end: 20160923
  2. TRAMADOL. [Concomitant]
     Active Substance: TRAMADOL
     Indication: BACK PAIN
     Dosage: 50 MG, QD
     Dates: start: 2009
  3. AMITRIPTYLINE [Concomitant]
     Active Substance: AMITRIPTYLINE
     Indication: BACK PAIN
     Dosage: 10 MG, QD
     Dates: start: 2001
  4. PROLIA [Suspect]
     Active Substance: DENOSUMAB
     Indication: OSTEOPOROSIS POSTMENOPAUSAL
  5. VITAMIN D [Concomitant]
     Active Substance: CHOLECALCIFEROL
     Dosage: UNK UNK, BID
  6. FRUSEMIDE [Concomitant]
     Active Substance: FUROSEMIDE
     Indication: HYPERTENSION
     Dosage: 20 MG, QD
     Dates: start: 2004
  7. CALCIUM [Concomitant]
     Active Substance: CALCIUM
     Dosage: UNK UNK, BID

REACTIONS (11)
  - Toothache [Unknown]
  - Influenza [Unknown]
  - Joint stiffness [Not Recovered/Not Resolved]
  - Tooth disorder [Recovered/Resolved]
  - Localised infection [Unknown]
  - Back pain [Not Recovered/Not Resolved]
  - Blood phosphorus decreased [Unknown]
  - Blood albumin decreased [Unknown]
  - Arthralgia [Unknown]
  - Myalgia [Unknown]
  - Hypoaesthesia oral [Not Recovered/Not Resolved]

NARRATIVE: CASE EVENT DATE: 201609
